FAERS Safety Report 14594626 (Version 2)
Quarter: 2019Q1

REPORT INFORMATION
  Report Type: Spontaneous
  Country: US (occurrence: US)
  Receive Date: 20180302
  Receipt Date: 20190306
  Transmission Date: 20190417
  Serious: No
  Sender: FDA-Public Use
  Company Number: US-AKORN PHARMACEUTICALS-2018AKN00093

PATIENT
  Age: 16 Year
  Sex: Male
  Weight: 92.06 kg

DRUGS (8)
  1. RETIN-A [Concomitant]
     Active Substance: TRETINOIN
  2. MYORISAN [Suspect]
     Active Substance: ISOTRETINOIN
     Indication: ACNE
     Dosage: 20 MG, 1X/DAY
     Route: 048
     Dates: start: 20171019, end: 20180116
  3. BENZAMYCIN [Concomitant]
     Active Substance: BENZOYL PEROXIDE\ERYTHROMYCIN
  4. ONEXTRON [Concomitant]
  5. CLINDAMYCIN. [Concomitant]
     Active Substance: CLINDAMYCIN
  6. MYORISAN [Suspect]
     Active Substance: ISOTRETINOIN
     Indication: ACNE
     Dosage: 40 MG, 1X/DAY
     Route: 048
     Dates: start: 20170831, end: 20180116
  7. DIFFERIN [Concomitant]
     Active Substance: ADAPALENE
  8. EPIDUO [Concomitant]
     Active Substance: ADAPALENE\BENZOYL PEROXIDE

REACTIONS (3)
  - Rectal haemorrhage [Unknown]
  - Haematochezia [Recovering/Resolving]
  - Off label use [Recovered/Resolved]

NARRATIVE: CASE EVENT DATE: 20170831
